FAERS Safety Report 9510024 (Version 2)
Quarter: 2013Q3

REPORT INFORMATION
  Report Type: Spontaneous
  Country: US (occurrence: US)
  Receive Date: 20130909
  Receipt Date: 20130909
  Transmission Date: 20140515
  Serious: No
  Sender: FDA-Public Use
  Company Number: US-BRISTOL-MYERS SQUIBB COMPANY-18857979

PATIENT
  Sex: Female

DRUGS (6)
  1. ABILIFY [Suspect]
     Indication: DEPRESSION
     Dosage: ONG:2TO3YRS
     Route: 048
  2. CLONAZEPAM [Concomitant]
  3. AMBIEN [Concomitant]
  4. SIMVASTATIN [Concomitant]
  5. LOSARTAN [Concomitant]
  6. CYMBALTA [Concomitant]

REACTIONS (1)
  - Tardive dyskinesia [Not Recovered/Not Resolved]
